FAERS Safety Report 23688859 (Version 1)
Quarter: 2024Q1

REPORT INFORMATION
  Report Type: Report from Study
  Country: US (occurrence: US)
  Receive Date: 20240329
  Receipt Date: 20240329
  Transmission Date: 20240410
  Serious: Yes (Other)
  Sender: FDA-Public Use
  Company Number: US-GILEAD-2024-0666857

PATIENT
  Sex: Female

DRUGS (4)
  1. AMBRISENTAN [Suspect]
     Active Substance: AMBRISENTAN
     Indication: Pulmonary hypertension
     Dosage: 5 MG, QD
     Route: 065
     Dates: start: 20210618
  2. ELIQUIS [Concomitant]
     Active Substance: APIXABAN
  3. AMLODIPINE [Concomitant]
     Active Substance: AMLODIPINE BESYLATE
  4. MIDODRINE [Concomitant]
     Active Substance: MIDODRINE

REACTIONS (7)
  - Atrial flutter [Unknown]
  - Atrial fibrillation [Unknown]
  - Blood pressure increased [Unknown]
  - Chest pain [Unknown]
  - Fatigue [Unknown]
  - Palpitations [Unknown]
  - Dyspnoea exertional [Unknown]
